FAERS Safety Report 21187147 (Version 1)
Quarter: 2022Q3

REPORT INFORMATION
  Report Type: Spontaneous
  Country: TW (occurrence: None)
  Receive Date: 20220808
  Receipt Date: 20220808
  Transmission Date: 20221027
  Serious: Yes (Death)
  Sender: FDA-Public Use
  Company Number: TW-ROCHE-3156073

PATIENT
  Age: 63 Year
  Sex: Female

DRUGS (2)
  1. MABTHERA [Suspect]
     Active Substance: RITUXIMAB
     Indication: Rheumatoid arthritis
     Route: 041
     Dates: start: 201902, end: 202103
  2. CELEBREX [Concomitant]
     Active Substance: CELECOXIB
     Route: 048
     Dates: end: 20210727

REACTIONS (1)
  - Breast cancer recurrent [Fatal]

NARRATIVE: CASE EVENT DATE: 20220701
